FAERS Safety Report 20897303 (Version 1)
Quarter: 2022Q2

REPORT INFORMATION
  Report Type: Spontaneous
  Country: TW (occurrence: TW)
  Receive Date: 20220531
  Receipt Date: 20220531
  Transmission Date: 20220720
  Serious: Yes (Death, Other)
  Sender: FDA-Public Use
  Company Number: TW-PFIZER INC-2020008181

PATIENT
  Sex: Female

DRUGS (6)
  1. IBRANCE [Suspect]
     Active Substance: PALBOCICLIB
     Dosage: 125 MG, 1X/DAY
     Route: 048
     Dates: start: 20190618
  2. IBRANCE [Suspect]
     Active Substance: PALBOCICLIB
     Dosage: 100 MG, 1X/DAY
     Route: 048
  3. IBRANCE [Suspect]
     Active Substance: PALBOCICLIB
     Dosage: 75 MG
     Route: 048
  4. ZOLADEX [Concomitant]
     Active Substance: GOSERELIN ACETATE
  5. ZOLADEX [Concomitant]
     Active Substance: GOSERELIN ACETATE
     Dosage: 3.6MG/SYR DEPOT
     Dates: start: 20191111
  6. ENOXOLONE [Concomitant]
     Active Substance: ENOXOLONE
     Dosage: 80G/TUBE
     Route: 048

REACTIONS (3)
  - Death [Fatal]
  - Leukopenia [Unknown]
  - Neutrophil count decreased [Unknown]
